FAERS Safety Report 9367802 (Version 1)
Quarter: 2013Q2

REPORT INFORMATION
  Report Type: Spontaneous
  Country: US (occurrence: US)
  Receive Date: 20130625
  Receipt Date: 20130625
  Transmission Date: 20140414
  Serious: Yes (Hospitalization)
  Sender: FDA-Public Use
  Company Number: US-ASTELLAS-2012US010003

PATIENT
  Age: 82 Year
  Sex: Male
  Weight: 80 kg

DRUGS (1)
  1. VESICARE [Suspect]
     Indication: HYPERTONIC BLADDER
     Dosage: 10 MG, UID/QD
     Route: 048
     Dates: start: 20120926, end: 20121004

REACTIONS (3)
  - Constipation [Unknown]
  - Nocturia [Unknown]
  - Dry mouth [Unknown]
